FAERS Safety Report 7897755-0 (Version None)
Quarter: 2011Q4

REPORT INFORMATION
  Report Type: 
  Country: None (occurrence: None)
  Receive Date: 20111103
  Receipt Date: 20111028
  Transmission Date: 20120403
  Serious: Yes (Other)
  Sender: FDA-Public Use
  Company Number: AUR-APL-2011-05624

PATIENT
  Sex: Female

DRUGS (4)
  1. CALCIUM SUPPLEMENT (CALCIUM) [Concomitant]
  2. ASPIRIN (ACETYLSALSALICYLIC ACID) [Concomitant]
  3. VITAMIN D [Concomitant]
  4. ALENDRONATE ACID (ALENDROIC ACID) (ALENDRONIC ACID) [Suspect]
     Indication: OSTEOPOROSIS
     Dosage: (70 MG, 1 WK), ORAL
     Route: 048

REACTIONS (2)
  - ARTHRALGIA [None]
  - PAIN IN EXTREMITY [None]
